FAERS Safety Report 9386941 (Version 1)
Quarter: 2013Q3

REPORT INFORMATION
  Report Type: Spontaneous
  Country: US (occurrence: None)
  Receive Date: 20130703
  Receipt Date: 20130703
  Transmission Date: 20140515
  Serious: No
  Sender: FDA-Public Use
  Company Number: None

PATIENT
  Age: 73 Year
  Sex: Male
  Weight: 89.8 kg

DRUGS (1)
  1. ALBUTEROL/IPRATROPIUM [Suspect]
     Dosage: MCG
     Route: 055
     Dates: start: 20130108, end: 20130618

REACTIONS (4)
  - Vision blurred [None]
  - Angioedema [None]
  - Dry mouth [None]
  - Product quality issue [None]
